FAERS Safety Report 25824134 (Version 1)
Quarter: 2025Q3

REPORT INFORMATION
  Report Type: Spontaneous
  Country: US (occurrence: None)
  Receive Date: 20250919
  Receipt Date: 20250919
  Transmission Date: 20251021
  Serious: No
  Sender: FDA-CTU
  Company Number: None

PATIENT
  Age: 69 Year
  Sex: Female
  Weight: 77.11 kg

DRUGS (4)
  1. CIPROFLOXACIN [Suspect]
     Active Substance: CIPROFLOXACIN
     Indication: Urinary tract infection
     Route: 048
     Dates: start: 20250826, end: 20250828
  2. LOW DOSE ASPIRIN [Concomitant]
     Active Substance: ASPIRIN
  3. DEMANNOSE [Concomitant]
     Active Substance: DEMANNOSE
  4. VITAMIN C [Concomitant]
     Active Substance: ASCORBIC ACID

REACTIONS (5)
  - Urinary retention [None]
  - Dysuria [None]
  - Therapy cessation [None]
  - Product dispensing error [None]
  - Near death experience [None]

NARRATIVE: CASE EVENT DATE: 20250828
